FAERS Safety Report 17920259 (Version 1)
Quarter: 2020Q2

REPORT INFORMATION
  Report Type: Spontaneous
  Country: US (occurrence: US)
  Receive Date: 20200620
  Receipt Date: 20200620
  Transmission Date: 20200714
  Serious: No
  Sender: FDA-Public Use
  Company Number: US-TEVA-2020-US-1791314

PATIENT
  Sex: Female

DRUGS (1)
  1. TEVAS METOPROLOL SUCCINATE [Suspect]
     Active Substance: METOPROLOL SUCCINATE
     Route: 065

REACTIONS (4)
  - Chest pain [Unknown]
  - Hypokinesia [Unknown]
  - Drug ineffective [Unknown]
  - Feeling abnormal [Unknown]
